FAERS Safety Report 14841689 (Version 1)
Quarter: 2018Q2

REPORT INFORMATION
  Report Type: Spontaneous
  Country: GB (occurrence: GB)
  Receive Date: 20180503
  Receipt Date: 20180503
  Transmission Date: 20180711
  Serious: Yes (Other)
  Sender: FDA-Public Use
  Company Number: GB-ASTRAZENECA-2018SE56183

PATIENT
  Age: 57 Year
  Sex: Female
  Weight: 66.2 kg

DRUGS (1)
  1. OMEPRAZOLE. [Suspect]
     Active Substance: OMEPRAZOLE
     Indication: DYSPEPSIA
     Dosage: 20.0MG UNKNOWN
     Route: 048
     Dates: start: 20180301, end: 20180411

REACTIONS (7)
  - pH urine abnormal [Unknown]
  - Vulvovaginal burning sensation [Recovering/Resolving]
  - Urinary tract infection [Unknown]
  - Vulvovaginal inflammation [Recovering/Resolving]
  - Pollakiuria [Unknown]
  - Malaise [Unknown]
  - Dermatitis [Unknown]

NARRATIVE: CASE EVENT DATE: 20180411
